FAERS Safety Report 5809508-5 (Version None)
Quarter: 2008Q3

REPORT INFORMATION
  Report Type: 
  Country: None (occurrence: None)
  Receive Date: 20080715
  Receipt Date: 20080703
  Transmission Date: 20090109
  Serious: Yes (Death)
  Sender: FDA-Public Use
  Company Number: DE-ELI_LILLY_AND_COMPANY-DE200806005237

PATIENT
  Sex: Male

DRUGS (8)
  1. CIALIS [Suspect]
     Dosage: 20 MG, UNKNOWN
     Route: 065
  2. AVELOX [Concomitant]
     Dosage: UNK, UNKNOWN
     Route: 065
     Dates: start: 20080101
  3. FORMOTEROL FUMARATE [Concomitant]
     Dosage: UNK, UNKNOWN
     Route: 065
     Dates: start: 20080101
  4. METOPROLOL [Concomitant]
     Dosage: UNK, UNKNOWN
     Route: 065
     Dates: start: 20050101
  5. CAPTOPRIL [Concomitant]
     Dosage: UNK, UNKNOWN
     Route: 065
     Dates: start: 20050101
  6. VALPROATE SODIUM [Concomitant]
     Dosage: UNK, UNKNOWN
     Route: 065
     Dates: start: 20060101
  7. OMEPRAZOLE [Concomitant]
     Dosage: UNK, UNKNOWN
     Route: 065
     Dates: start: 20060101
  8. ASPIRIN [Concomitant]
     Dosage: UNK, UNKNOWN
     Route: 065

REACTIONS (1)
  - DEATH [None]
